FAERS Safety Report 5768982-3 (Version None)
Quarter: 2008Q2

REPORT INFORMATION
  Report Type: 
  Country: None (occurrence: None)
  Receive Date: 20080612
  Receipt Date: 20080317
  Transmission Date: 20081010
  Serious: No
  Sender: FDA-Public Use
  Company Number: US-ABBOTT-08P-163-0443097-00

PATIENT
  Sex: Male
  Weight: 83.99 kg

DRUGS (4)
  1. HUMIRA [Suspect]
     Indication: PSORIASIS
     Route: 058
     Dates: start: 20080229, end: 20080229
  2. HUMIRA [Suspect]
     Indication: PSORIATIC ARTHROPATHY
     Route: 058
     Dates: start: 20080307, end: 20080307
  3. HUMIRA [Suspect]
     Route: 058
     Dates: start: 20080321
  4. RABEPRAZOLE SODIUM [Concomitant]
     Indication: DYSPEPSIA

REACTIONS (5)
  - BONE PAIN [None]
  - CHILLS [None]
  - COUGH [None]
  - HEADACHE [None]
  - RESPIRATORY TRACT CONGESTION [None]
